FAERS Safety Report 10650371 (Version 2)
Quarter: 2014Q4

REPORT INFORMATION
  Report Type: Spontaneous
  Country: US (occurrence: US)
  Receive Date: 20141213
  Receipt Date: 20141213
  Transmission Date: 20150529
  Serious: No
  Sender: FDA-Public Use
  Company Number: US-BAUSCH-SYM-2014-22645

PATIENT
  Age: 43 Year
  Sex: Male

DRUGS (2)
  1. XENAZINE [Suspect]
     Active Substance: TETRABENAZINE
     Dosage: 2 TABLETS IN THE MORNING, 1 TABLET IN MIDDAY AND 1 TABLET IN THE EVENING
     Route: 048
     Dates: start: 20140401
  2. XENAZINE [Suspect]
     Active Substance: TETRABENAZINE
     Indication: HUNTINGTON^S DISEASE
     Route: 048
     Dates: start: 201403, end: 2014

REACTIONS (5)
  - Dysphagia [Unknown]
  - Salivary hypersecretion [Unknown]
  - Anxiety [Unknown]
  - Insomnia [Unknown]
  - Psychomotor hyperactivity [Unknown]

NARRATIVE: CASE EVENT DATE: 2014
